FAERS Safety Report 9884248 (Version 1)
Quarter: 2014Q1

REPORT INFORMATION
  Report Type: Spontaneous
  Country: US (occurrence: None)
  Receive Date: 20140207
  Receipt Date: 20140207
  Transmission Date: 20141002
  Serious: No
  Sender: FDA-Public Use
  Company Number: None

PATIENT
  Age: 52 Year
  Sex: Male
  Weight: 120.2 kg

DRUGS (2)
  1. HYDROCODON - ACETAMINOPHEN [Suspect]
     Indication: PROCEDURAL PAIN
     Dosage: 2 PILLS AS NEEDED TAKEN BY MOUTH
     Route: 048
     Dates: start: 20140204, end: 20140205
  2. HYDROCODON - ACETAMINOPHEN [Suspect]
     Indication: BACK PAIN
     Dosage: 2 PILLS AS NEEDED TAKEN BY MOUTH
     Route: 048
     Dates: start: 20140204, end: 20140205

REACTIONS (5)
  - Dyspepsia [None]
  - Dyspepsia [None]
  - Pruritus [None]
  - Diarrhoea [None]
  - Malaise [None]
